FAERS Safety Report 9944060 (Version 1)
Quarter: 2014Q1

REPORT INFORMATION
  Report Type: Report from Study
  Country: US (occurrence: US)
  Receive Date: 20140303
  Receipt Date: 20140303
  Transmission Date: 20141002
  Serious: No
  Sender: FDA-Public Use
  Company Number: US-ABBVIE-13P-163-1051081-00

PATIENT
  Age: 73 Year
  Sex: Female
  Weight: 65.38 kg

DRUGS (3)
  1. HUMIRA [Suspect]
     Indication: CROHN^S DISEASE
     Route: 058
     Dates: start: 2011
  2. AMOXICILLIN [Suspect]
     Indication: INFLUENZA
     Route: 048
     Dates: start: 201301
  3. ANTIBIOTICS [Suspect]
     Indication: INFLUENZA
     Dates: start: 2013

REACTIONS (4)
  - Cough [Not Recovered/Not Resolved]
  - Influenza [Recovered/Resolved]
  - Diarrhoea [Recovered/Resolved]
  - Diarrhoea [Not Recovered/Not Resolved]
